FAERS Safety Report 9816651 (Version 1)
Quarter: 2014Q1

REPORT INFORMATION
  Report Type: Spontaneous
  Country: US (occurrence: US)
  Receive Date: 20140114
  Receipt Date: 20140114
  Transmission Date: 20141002
  Serious: Yes (Other)
  Sender: FDA-Public Use
  Company Number: US-ELI_LILLY_AND_COMPANY-US201401000963

PATIENT
  Sex: Male

DRUGS (11)
  1. CYMBALTA [Suspect]
     Indication: BIPOLAR DISORDER
     Dosage: 90 MG, QD
     Route: 065
     Dates: start: 201207
  2. CYMBALTA [Suspect]
     Indication: DEPRESSION
  3. CYMBALTA [Suspect]
     Indication: ANXIETY
  4. DULOXETINE [Suspect]
     Indication: BIPOLAR DISORDER
     Dosage: 90 MG, QD
     Route: 065
  5. DULOXETINE [Suspect]
     Indication: DEPRESSION
  6. DULOXETINE [Suspect]
     Indication: ANXIETY
  7. OLANZAPINE [Suspect]
     Indication: BIPOLAR DISORDER
     Dosage: UNK, UNKNOWN
     Route: 065
  8. OLANZAPINE [Suspect]
     Indication: DEPRESSION
  9. OLANZAPINE [Suspect]
     Indication: ANXIETY
  10. LAMICTAL [Concomitant]
     Indication: PRODUCT USED FOR UNKNOWN INDICATION
     Dosage: UNK, UNKNOWN
     Route: 065
  11. ADVAIR [Concomitant]
     Indication: PRODUCT USED FOR UNKNOWN INDICATION
     Dosage: UNK, UNKNOWN
     Route: 065

REACTIONS (7)
  - Suicidal ideation [Unknown]
  - Affect lability [Unknown]
  - Bipolar disorder [Unknown]
  - Anger [Unknown]
  - Insomnia [Unknown]
  - Drug withdrawal syndrome [Unknown]
  - Intentional drug misuse [Unknown]
